FAERS Safety Report 24331938 (Version 1)
Quarter: 2024Q3

REPORT INFORMATION
  Report Type: Spontaneous
  Country: IN (occurrence: IN)
  Receive Date: 20240918
  Receipt Date: 20240918
  Transmission Date: 20241017
  Serious: Yes (Life-Threatening, Hospitalization, Other)
  Sender: NEXUS PHARMACEUTICALS
  Company Number: IN-Nexus Pharma-000308

PATIENT
  Sex: Male

DRUGS (5)
  1. TIROFIBAN HYDROCHLORIDE [Suspect]
     Active Substance: TIROFIBAN HYDROCHLORIDE
     Indication: Thrombosis
     Dosage: BOLUS OF 25 UG/KG FOLLOWED BY A MAINTENANCE DOSE OF 0.15 UG/KG/MIN
     Route: 022
  2. ASPIRIN [Concomitant]
     Active Substance: ASPIRIN
  3. CLOPIDOGREL [Concomitant]
     Active Substance: CLOPIDOGREL BISULFATE
  4. ATORVASTATIN [Concomitant]
     Active Substance: ATORVASTATIN
  5. HEPARIN [Concomitant]
     Active Substance: HEPARIN SODIUM
     Dosage: UNFRACTIONATED

REACTIONS (1)
  - Pulmonary alveolar haemorrhage [Recovered/Resolved]
